FAERS Safety Report 9971155 (Version 1)
Quarter: 2014Q1

REPORT INFORMATION
  Report Type: Spontaneous
  Country: US (occurrence: None)
  Receive Date: 20140127
  Receipt Date: 20140127
  Transmission Date: 20141002
  Serious: Yes (Death)
  Sender: FDA-Public Use
  Company Number: 1158954

PATIENT
  Age: 82 Year
  Sex: Female

DRUGS (16)
  1. ACTIVASE [Suspect]
     Indication: CEREBROVASCULAR ACCIDENT
     Dosage: 81 MG, INTRAVENOUS (NOT OTHERWISE SPECIFIED)
     Route: 042
     Dates: start: 20121011, end: 20121011
  2. NYSTATIN (NYSTATIN) [Concomitant]
  3. FUROSEMIDE (FUROSEMIDE) [Concomitant]
  4. IRON (IRON NOS) [Concomitant]
  5. LISINOPRIL (LISINOPRIL) [Concomitant]
  6. BACTRIM DS (SULFAMETHOXAZOLE, TRIMETHOPRIM) [Concomitant]
  7. SIMVASTATIN (SIMVASTATIN) [Concomitant]
  8. CALCARB 600 WITH VITAMIN D (CALCIUM CARBONATE, CHOLECALCIFEROL) [Concomitant]
  9. NITROGLYCERINE (NUTROGLYCERIN) [Concomitant]
  10. NOVOLIN (INSULIN HUMAN) [Concomitant]
  11. NOVOLOG (INSULIN ASPART) [Concomitant]
  12. ARICEPT (DONEPEZIL HYDROCHLORIDE) [Concomitant]
  13. ASPIRIN (ASPIRIN) [Concomitant]
  14. COREG (CARVEDILOL) [Concomitant]
  15. FLUOCINOLIDE (FLUOCINONIDE) [Concomitant]
  16. VITAMIN B12 (CYANOCOBALAMIN) [Concomitant]

REACTIONS (1)
  - Haemorrhage intracranial [None]
